FAERS Safety Report 5120961-5 (Version None)
Quarter: 2006Q4

REPORT INFORMATION
  Report Type: 
  Country: None (occurrence: None)
  Receive Date: 20061005
  Receipt Date: 20060928
  Transmission Date: 20070319
  Serious: Yes (Other)
  Sender: FDA-Public Use
  Company Number: US-ROCHE-465274

PATIENT
  Age: 50 Year
  Sex: Male
  Weight: 93 kg

DRUGS (6)
  1. PEG-INTERFERON ALFA 2A (RO 25-8310) [Suspect]
     Route: 058
     Dates: start: 20050825, end: 20060727
  2. RIBAVIRIN [Suspect]
     Route: 048
     Dates: start: 20050825, end: 20060803
  3. WELLBUTRIN [Concomitant]
     Dosage: REPORTED AS WELBUTRIN.
     Dates: start: 20040615
  4. PREVACID [Concomitant]
     Dates: start: 20050615
  5. PRAVACHOL [Concomitant]
     Dates: start: 20040615
  6. CELEBREX [Concomitant]
     Dates: start: 20060115

REACTIONS (1)
  - PIGMENTATION DISORDER [None]
